FAERS Safety Report 7595375-9 (Version None)
Quarter: 2011Q3

REPORT INFORMATION
  Report Type: 
  Country: None (occurrence: None)
  Receive Date: 20110707
  Receipt Date: 20110627
  Transmission Date: 20111222
  Serious: Yes (Hospitalization)
  Sender: FDA-Public Use
  Company Number: FR-US-EMD SERONO, INC.-7067046

PATIENT
  Sex: Female
  Weight: 68 kg

DRUGS (8)
  1. ADVIL LIQUI-GELS [Concomitant]
     Indication: MULTIPLE SCLEROSIS
     Route: 048
     Dates: start: 20101203
  2. ADVIL LIQUI-GELS [Concomitant]
     Route: 048
     Dates: end: 20100915
  3. REBIF [Suspect]
     Indication: RELAPSING-REMITTING MULTIPLE SCLEROSIS
     Route: 058
     Dates: start: 20101203
  4. ADEPAL [Concomitant]
     Indication: CONTRACEPTION
     Route: 048
     Dates: start: 19920101, end: 20100821
  5. BLINDED STUDY MEDICATION [Suspect]
     Indication: RELAPSING-REMITTING MULTIPLE SCLEROSIS
     Dates: start: 20100402, end: 20110620
  6. ACETAMINOPHEN [Concomitant]
     Indication: MULTIPLE SCLEROSIS
     Route: 048
     Dates: start: 20100916
  7. HARMONET [Concomitant]
     Indication: CONTRACEPTION
     Route: 048
     Dates: start: 20100822
  8. METFORMIN HCL [Concomitant]
     Indication: DIABETES MELLITUS
     Route: 048
     Dates: start: 20110225

REACTIONS (1)
  - ABDOMINAL ABSCESS [None]
